FAERS Safety Report 14488498 (Version 3)
Quarter: 2018Q1

REPORT INFORMATION
  Report Type: Spontaneous
  Country: CA (occurrence: CA)
  Receive Date: 20180205
  Receipt Date: 20180223
  Transmission Date: 20180509
  Serious: Yes (Hospitalization, Other)
  Sender: FDA-Public Use
  Company Number: CA-PFIZER INC-2018049559

PATIENT
  Age: 35 Year
  Sex: Male

DRUGS (13)
  1. BECLOMETASONE DIPROPIONATE [Suspect]
     Active Substance: BECLOMETHASONE DIPROPIONATE
     Dosage: TWO DOSAGE FORM ONCE DAILY
     Route: 065
  2. SALBUTAMOL SULFATE [Suspect]
     Active Substance: ALBUTEROL SULFATE
     Dosage: TWO DOSAGE FORM OF AN UNKNOWN FREQUENCY
     Route: 065
  3. SULFAMETHOXAZOLE AND TRIMETHOPRIM [Suspect]
     Active Substance: SULFAMETHOXAZOLE\TRIMETHOPRIM
     Dosage: ONE DOSAGE FORM TWICE DAILY
     Route: 065
  4. AMOXICILLIN. [Suspect]
     Active Substance: AMOXICILLIN
     Dosage: TWO DOSAGE FORM, THREE TIMES DAILY
     Route: 065
  5. SPIRIVA [Suspect]
     Active Substance: TIOTROPIUM BROMIDE MONOHYDRATE
     Dosage: ONE DOSAGE FORM DAILY
     Route: 065
  6. TUDORZA PRESSAIR [Suspect]
     Active Substance: ACLIDINIUM BROMIDE
     Dosage: ONE DOSAGE FORM, TWICE DAILY
     Route: 065
  7. PANTOPRAZOLE [Suspect]
     Active Substance: PANTOPRAZOLE
     Dosage: ONE DOSAGE FORM, DAILY
     Route: 065
  8. NYSTATIN. [Suspect]
     Active Substance: NYSTATIN
     Dosage: 40 ML EVERY DAY
     Route: 065
  9. AMOXICILLIN TRIHYDRATE AND POTASSIUM CLAVULAN [Suspect]
     Active Substance: AMOXICILLIN\CLAVULANATE POTASSIUM
     Dosage: ONE DOSAGE FORM, TWICE DAILY
     Route: 065
  10. NUCALA [Suspect]
     Active Substance: MEPOLIZUMAB
     Dosage: 100 MG, UNK
     Route: 042
  11. SYMBICORT [Suspect]
     Active Substance: BUDESONIDE\FORMOTEROL FUMARATE DIHYDRATE
     Dosage: TWO DOSAGE FORM, TWICE DAILY
     Route: 065
  12. NUCALA [Suspect]
     Active Substance: MEPOLIZUMAB
     Indication: ASTHMA
     Dosage: 100 MG, UNK
     Route: 065
  13. PREDNISONE. [Suspect]
     Active Substance: PREDNISONE
     Dosage: UNK
     Route: 048

REACTIONS (23)
  - Oxygen saturation decreased [Recovered/Resolved]
  - Dyspnoea [Recovered/Resolved]
  - Productive cough [Recovered/Resolved]
  - Pulmonary congestion [Recovered/Resolved]
  - General physical health deterioration [Recovered/Resolved]
  - Sleep disorder [Recovered/Resolved]
  - Cognitive disorder [Recovered/Resolved]
  - Depression [Recovered/Resolved]
  - Psychiatric symptom [Recovered/Resolved]
  - Sinusitis [Recovered/Resolved]
  - Personal relationship issue [Recovered/Resolved]
  - Therapeutic response decreased [Recovered/Resolved]
  - Irritability [Recovered/Resolved]
  - Malaise [Recovered/Resolved]
  - Mood swings [Recovered/Resolved]
  - Oral candidiasis [Recovered/Resolved]
  - Quality of life decreased [Recovered/Resolved]
  - Asthenia [Recovered/Resolved]
  - Immune system disorder [Recovered/Resolved]
  - Asthma [Recovered/Resolved]
  - Decreased activity [Recovered/Resolved]
  - Fatigue [Recovered/Resolved]
  - Weight increased [Recovered/Resolved]
